FAERS Safety Report 23487640 (Version 1)
Quarter: 2024Q1

REPORT INFORMATION
  Report Type: Spontaneous
  Country: US (occurrence: None)
  Receive Date: 20240205
  Receipt Date: 20240205
  Transmission Date: 20240410
  Serious: Yes (Life-Threatening)
  Sender: FDA-Public Use
  Company Number: None

PATIENT
  Age: 52 Year
  Sex: Female
  Weight: 123.75 kg

DRUGS (8)
  1. ORIAHNN [Suspect]
     Active Substance: ELAGOLIX SODIUM\ESTRADIOL\NORETHINDRONE
     Indication: Uterine leiomyoma
     Dosage: OTHER QUANTITY : 1 CAPSULE(S);?FREQUENCY : TWICE A DAY;?
     Route: 048
     Dates: start: 20231001, end: 20240129
  2. multi vitamin [Concomitant]
  3. TYLENOL [Concomitant]
  4. Advil [Concomitant]
  5. glucosamine chonodroitin [Concomitant]
  6. MAGNESIUM [Concomitant]
  7. ADRENAL [Concomitant]
  8. CALTRATE [Concomitant]
     Active Substance: CALCIUM CARBONATE

REACTIONS (21)
  - Constipation [None]
  - Weight increased [None]
  - Dizziness [None]
  - Confusional state [None]
  - Hot flush [None]
  - Fatigue [None]
  - Heart rate increased [None]
  - Headache [None]
  - Depression [None]
  - Mood altered [None]
  - Blood pressure increased [None]
  - Hair growth abnormal [None]
  - Irritability [None]
  - Emotional disorder [None]
  - Thinking abnormal [None]
  - Flushing [None]
  - Heart rate increased [None]
  - Cognitive disorder [None]
  - Food craving [None]
  - Nocturia [None]
  - Visual impairment [None]

NARRATIVE: CASE EVENT DATE: 20240129
